FAERS Safety Report 8266091-5 (Version None)
Quarter: 2012Q1

REPORT INFORMATION
  Report Type: 
  Country: None (occurrence: None)
  Receive Date: 20120327
  Receipt Date: 20100427
  Transmission Date: 20120608
  Serious: Yes (Hospitalization, Other)
  Sender: FDA-Public Use
  Company Number: PHHY2010US27432

PATIENT
  Age: 68 Year
  Sex: Male
  Weight: 87 kg

DRUGS (11)
  1. ACE INHIBITOR NOS (NO INGREDIENTS/SUBSTANCES) [Concomitant]
  2. ASPIRIN [Concomitant]
  3. GLEEVEC [Suspect]
     Indication: GASTROINTESTINAL STROMAL TUMOUR
     Dosage: 800;400;600 MG, DAILY, ORAL
     Route: 048
     Dates: start: 20100418
  4. GLEEVEC [Suspect]
     Indication: GASTROINTESTINAL STROMAL TUMOUR
     Dosage: 800;400;600 MG, DAILY, ORAL
     Route: 048
     Dates: start: 20100410
  5. GLEEVEC [Suspect]
     Indication: GASTROINTESTINAL STROMAL TUMOUR
     Dosage: 800;400;600 MG, DAILY, ORAL
     Route: 048
     Dates: start: 20070312
  6. GLEEVEC [Suspect]
     Indication: GASTROINTESTINAL STROMAL TUMOUR
     Dosage: 800;400;600 MG, DAILY, ORAL
     Route: 048
     Dates: start: 20100419
  7. GLEEVEC [Suspect]
     Indication: GASTROINTESTINAL STROMAL TUMOUR
     Dosage: 800;400;600 MG, DAILY, ORAL
     Route: 048
     Dates: start: 20100417
  8. ASPIRIN [Concomitant]
  9. LAMISIL [Concomitant]
  10. PEGINTERFERON ALFA-2B [Concomitant]
  11. LISINOPRIL [Suspect]
     Indication: HYPERTENSION
     Dosage: 30 MG, UNK
     Dates: start: 20050101

REACTIONS (8)
  - SWOLLEN TONGUE [None]
  - ANGIOEDEMA [None]
  - OEDEMA MOUTH [None]
  - PHARYNGEAL OEDEMA [None]
  - NEOPLASM PROGRESSION [None]
  - DYSPNOEA [None]
  - DYSPHAGIA [None]
  - GASTROINTESTINAL STROMAL TUMOUR [None]
